APPROVED DRUG PRODUCT: RIVASTIGMINE
Active Ingredient: RIVASTIGMINE
Strength: 4.6MG/24HR
Dosage Form/Route: FILM, EXTENDED RELEASE;TRANSDERMAL
Application: A209063 | Product #001 | TE Code: AB
Applicant: BRECKENRIDGE PHARMACEUTICAL INC
Approved: Nov 26, 2019 | RLD: No | RS: No | Type: RX